FAERS Safety Report 4658311-0 (Version None)
Quarter: 2005Q2

REPORT INFORMATION
  Report Type: 
  Country: None (occurrence: None)
  Receive Date: 20050510
  Receipt Date: 20050510
  Transmission Date: 20051028
  Serious: Yes (Other)
  Sender: FDA-Public Use
  Company Number: None

PATIENT
  Age: 70 Year
  Sex: Female

DRUGS (1)
  1. CELEBREX [Suspect]
     Dosage: ORAL CAPSULE
     Route: 048
     Dates: start: 20050215

REACTIONS (3)
  - ERYTHEMA [None]
  - HYPOTENSION [None]
  - LETHARGY [None]
